FAERS Safety Report 23030754 (Version 1)
Quarter: 2023Q4

REPORT INFORMATION
  Report Type: Other
  Country: GB (occurrence: None)
  Receive Date: 20231005
  Receipt Date: 20231005
  Transmission Date: 20240110
  Serious: Yes (Death, Other)
  Sender: FDA-Public Use
  Company Number: GB-ROCHE-3428437

PATIENT

DRUGS (2)
  1. PLACEBO [Suspect]
     Active Substance: UNSPECIFIED INGREDIENT
     Indication: Lupus nephritis
     Dosage: 4 WEEKS FOR 48 WEEKS
     Route: 042
  2. MYCOPHENOLATE MOFETIL [Suspect]
     Active Substance: MYCOPHENOLATE MOFETIL
     Indication: Immunosuppression
     Dosage: MMF WAS TITRATED TO A TARGET DOSAGE OF 2 G/DAY BY WEEK 8
     Route: 065

REACTIONS (20)
  - Cerebrovascular disorder [Fatal]
  - Herpes zoster disseminated [Recovered/Resolved]
  - Neoplasm malignant [Unknown]
  - Infection [Unknown]
  - Herpes zoster [Recovered/Resolved]
  - Cardiovascular disorder [Unknown]
  - Opportunistic infection [Unknown]
  - Infusion related reaction [Unknown]
  - Influenza [Unknown]
  - Urinary tract infection [Unknown]
  - Nasopharyngitis [Unknown]
  - Upper respiratory tract infection [Unknown]
  - Bronchitis [Unknown]
  - Diarrhoea [Unknown]
  - Cough [Unknown]
  - Pharyngitis [Unknown]
  - Oral herpes [Unknown]
  - Headache [Unknown]
  - Herpes simplex [Unknown]
  - Nausea [Unknown]
